FAERS Safety Report 6956348-X (Version None)
Quarter: 2010Q3

REPORT INFORMATION
  Report Type: 
  Country: None (occurrence: None)
  Receive Date: 20100830
  Receipt Date: 20100824
  Transmission Date: 20110219
  Serious: Yes (Hospitalization)
  Sender: FDA-Public Use
  Company Number: A0861587A

PATIENT
  Age: 68 Year
  Sex: Female
  Weight: 113.6 kg

DRUGS (11)
  1. AVANDIA [Suspect]
  2. AVALIDE [Concomitant]
  3. RANITIDINE [Concomitant]
  4. ASPIRIN [Concomitant]
  5. CRESTOR [Concomitant]
  6. COREG [Concomitant]
  7. LASIX [Concomitant]
  8. CELEBREX [Concomitant]
  9. PLAVIX [Concomitant]
  10. POTASSIUM CHLORIDE [Concomitant]
  11. LANTUS [Concomitant]

REACTIONS (3)
  - CARDIAC DISORDER [None]
  - CARDIAC FAILURE CONGESTIVE [None]
  - MYOCARDIAL INFARCTION [None]
